FAERS Safety Report 7561385-0 (Version None)
Quarter: 2011Q2

REPORT INFORMATION
  Report Type: 
  Country: None (occurrence: None)
  Receive Date: 20110621
  Receipt Date: 20100625
  Transmission Date: 20111010
  Serious: No
  Sender: FDA-Public Use
  Company Number: US-ASTRAZENECA-2010SE29877

PATIENT
  Sex: Female

DRUGS (3)
  1. ALBUTEROL SULFATE AUTOHALER [Concomitant]
  2. OXYGEN [Concomitant]
  3. PULMICORT [Suspect]
     Indication: DYSPNOEA
     Route: 055

REACTIONS (1)
  - DYSPNOEA [None]
